FAERS Safety Report 25550124 (Version 1)
Quarter: 2025Q3

REPORT INFORMATION
  Report Type: Spontaneous
  Country: US (occurrence: US)
  Receive Date: 20250714
  Receipt Date: 20250714
  Transmission Date: 20251020
  Serious: No
  Sender: FOUNDATION CONSUMER HEALTHCARE, LLC
  Company Number: US-FOUNDATIONCONSUMERHC-2025-US-026933

PATIENT
  Age: 33 Year
  Sex: Female
  Weight: 52.16 kg

DRUGS (2)
  1. TAKE ACTION [Suspect]
     Active Substance: LEVONORGESTREL
     Indication: Contraception
     Route: 048
     Dates: end: 20250602
  2. VITAMIN C [Concomitant]
     Active Substance: ASCORBIC ACID

REACTIONS (7)
  - Nausea [Recovered/Resolved]
  - Abdominal pain [Recovered/Resolved]
  - Breast tenderness [Recovered/Resolved]
  - Abdominal distension [Recovered/Resolved]
  - Increased appetite [Recovered/Resolved]
  - Intentional product misuse [Recovered/Resolved]
  - Product use in unapproved indication [Recovered/Resolved]
